FAERS Safety Report 14472206 (Version 1)
Quarter: 2018Q1

REPORT INFORMATION
  Report Type: Spontaneous
  Country: US (occurrence: US)
  Receive Date: 20180131
  Receipt Date: 20180131
  Transmission Date: 20180509
  Serious: Yes (Life-Threatening, Hospitalization, Other)
  Sender: FDA-Public Use
  Company Number: US-MYLANLABS-2018M1006335

PATIENT
  Age: 5 Year
  Sex: Male

DRUGS (3)
  1. NITROUS OXIDE. [Suspect]
     Active Substance: NITROUS OXIDE
     Indication: INDUCTION OF ANAESTHESIA
     Dosage: UNK
     Route: 065
  2. SEVOFLURANE. [Suspect]
     Active Substance: SEVOFLURANE
     Indication: INDUCTION OF ANAESTHESIA
     Dosage: UNK
     Route: 065
  3. DANTROLENE. [Suspect]
     Active Substance: DANTROLENE SODIUM
     Indication: PRODUCT USED FOR UNKNOWN INDICATION
     Dosage: 4 DOSES OF 60 MG EACH; 710 MG OVER 48 HOURS; STOPPED ON DAY TWO
     Route: 042

REACTIONS (7)
  - Shock [Unknown]
  - Respiratory failure [Unknown]
  - Pulmonary haemorrhage [Unknown]
  - Disseminated intravascular coagulation [Unknown]
  - Renal failure [Recovered/Resolved]
  - Compartment syndrome [Unknown]
  - Hepatic failure [Recovering/Resolving]
